FAERS Safety Report 10358399 (Version 1)
Quarter: 2014Q3

REPORT INFORMATION
  Report Type: Spontaneous
  Country: US (occurrence: US)
  Receive Date: 20140801
  Receipt Date: 20140801
  Transmission Date: 20150326
  Serious: Yes (Hospitalization)
  Sender: FDA-Public Use
  Company Number: US-B.I. PHARMACEUTICALS,INC./RIDGEFIELD-2014-BI-34771BP

PATIENT
  Age: 83 Year
  Sex: Female

DRUGS (7)
  1. PRADAXA [Suspect]
     Active Substance: DABIGATRAN ETEXILATE MESYLATE
     Indication: ATRIAL FIBRILLATION
     Dosage: 300 MG
     Route: 048
     Dates: start: 20120404, end: 20121009
  2. EXELON [Concomitant]
     Active Substance: RIVASTIGMINE TARTRATE
     Dosage: 9 MG
     Route: 048
     Dates: start: 20110119
  3. KLONOPIN [Concomitant]
     Active Substance: CLONAZEPAM
     Dosage: STRENGTH: 0.5 MG,
     Route: 048
     Dates: start: 20120413
  4. NAMENDA [Concomitant]
     Active Substance: MEMANTINE HYDROCHLORIDE
     Dosage: 20 MG
     Route: 048
     Dates: start: 20120521
  5. TRIMETHOPRIM. [Concomitant]
     Active Substance: TRIMETHOPRIM
     Dosage: 100 MG
     Route: 048
     Dates: start: 20120516
  6. BROVANA [Concomitant]
     Active Substance: ARFORMOTEROL TARTRATE
     Dosage: ROUE: VIA NEBULISER; STRENGTH: 15 MCG/2 ML, 1 VIAL; DAILY DOSE: 2 VIALS
     Route: 050
     Dates: start: 20110718
  7. BUDESONIDE. [Concomitant]
     Active Substance: BUDESONIDE
     Dosage: ROUTE: VIA NEB; STRENGTH: 0.5 MG/ 2ML, 1 VIAL; DAILY DOSE 2 VIALS
     Route: 050
     Dates: start: 20110718

REACTIONS (6)
  - Sepsis [Unknown]
  - Haemoptysis [Recovered/Resolved]
  - Hypotension [Recovered/Resolved]
  - Coagulopathy [Recovered/Resolved]
  - Renal failure acute [Recovered/Resolved]
  - Anaemia [Recovered/Resolved]

NARRATIVE: CASE EVENT DATE: 201210
